APPROVED DRUG PRODUCT: LEVOTHYROXINE SODIUM
Active Ingredient: LEVOTHYROXINE SODIUM
Strength: 0.125MG **See current Annual Edition, 1.8 Description of Special Situations, Levothyroxine Sodium
Dosage Form/Route: TABLET;ORAL
Application: A076187 | Product #007 | TE Code: AB1,AB2,AB3,AB4
Applicant: MYLAN PHARMACEUTICALS INC
Approved: Jun 5, 2002 | RLD: No | RS: No | Type: RX